FAERS Safety Report 4646756-4 (Version None)
Quarter: 2005Q2

REPORT INFORMATION
  Report Type: 
  Country: None (occurrence: None)
  Receive Date: 20050425
  Receipt Date: 20050425
  Transmission Date: 20051028
  Serious: Yes (Hospitalization)
  Sender: FDA-Public Use
  Company Number: None

PATIENT
  Age: 38 Year
  Sex: Female

DRUGS (1)
  1. CITALOPRAM    10MG [Suspect]
     Indication: ANTIDEPRESSANT THERAPY
     Dosage: 10MG  QD   ORAL
     Route: 048
     Dates: start: 20040929, end: 20041002

REACTIONS (2)
  - CHEST PAIN [None]
  - DIZZINESS [None]
